FAERS Safety Report 15147679 (Version 22)
Quarter: 2021Q2

REPORT INFORMATION
  Report Type: Spontaneous
  Country: US (occurrence: US)
  Receive Date: 20180716
  Receipt Date: 20210521
  Transmission Date: 20210716
  Serious: Yes (Hospitalization, Other)
  Sender: FDA-Public Use
  Company Number: US-PFIZER INC-2018283303

PATIENT
  Age: 60 Year
  Sex: Male
  Weight: 76.2 kg

DRUGS (9)
  1. LYRICA [Suspect]
     Active Substance: PREGABALIN
     Indication: RESTLESS LEGS SYNDROME
     Dosage: 150 MG, ONCE DAILY (AT BEDTIME)
     Route: 048
  2. AMLODIPINE [Concomitant]
     Active Substance: AMLODIPINE BESYLATE
     Dosage: 10 MG
     Dates: start: 2015
  3. LYRICA [Suspect]
     Active Substance: PREGABALIN
     Indication: NEUROPATHY PERIPHERAL
     Dosage: 75 MG, TWICE DAILY (IN THE MORNING AND THEN AT NIGHT)
     Route: 048
     Dates: start: 201711, end: 20180711
  4. LYRICA [Suspect]
     Active Substance: PREGABALIN
     Dosage: 150 MG, ONCE DAILY
     Route: 048
  5. LYRICA [Suspect]
     Active Substance: PREGABALIN
     Indication: CHRONIC OBSTRUCTIVE PULMONARY DISEASE
     Dosage: 1 DF, DAILY (1 PILL A DAY)
  6. LYRICA [Suspect]
     Active Substance: PREGABALIN
     Indication: PAIN IN EXTREMITY
     Dosage: 75 MG, TWICE DAILY
     Route: 048
     Dates: start: 20180924
  7. CLONAZEPAM. [Concomitant]
     Active Substance: CLONAZEPAM
     Dosage: 0.5 MG, UNKNOWN FREQUENCY
  8. HYDROCHLOROTH [Concomitant]
     Active Substance: HYDROCHLOROTHIAZIDE
     Dosage: 12.5 MG, UNKNOWN FREQUENCY
  9. LISINOPRIL. [Concomitant]
     Active Substance: LISINOPRIL
     Dosage: 40 MG, UNKNOWN FREQUENCY
     Dates: start: 2015

REACTIONS (11)
  - Oxygen saturation decreased [Unknown]
  - Diarrhoea [Recovered/Resolved]
  - Abnormal dreams [Unknown]
  - Loss of personal independence in daily activities [Recovered/Resolved]
  - Intentional dose omission [Unknown]
  - Visual impairment [Recovered/Resolved]
  - Intentional product use issue [Unknown]
  - Lymphadenopathy [Unknown]
  - Confusional state [Recovered/Resolved]
  - Product dose omission issue [Unknown]
  - Somnolence [Recovered/Resolved]

NARRATIVE: CASE EVENT DATE: 2017
